FAERS Safety Report 14416851 (Version 1)
Quarter: 2018Q1

REPORT INFORMATION
  Report Type: Spontaneous
  Country: US (occurrence: US)
  Receive Date: 20180119
  Receipt Date: 20180119
  Transmission Date: 20180509
  Serious: Yes (Hospitalization)
  Sender: FDA-Public Use
  Company Number: None

PATIENT
  Age: 48 Year
  Sex: Female

DRUGS (24)
  1. ALLOPURINOL. [Concomitant]
     Active Substance: ALLOPURINOL
  2. OMEPRAZOLE. [Concomitant]
     Active Substance: OMEPRAZOLE
  3. OXYCODONE-ACETAMINOPHEN [Concomitant]
     Active Substance: ACETAMINOPHEN\OXYCODONE HYDROCHLORIDE
  4. RIVAROXABAN [Concomitant]
     Active Substance: RIVAROXABAN
  5. ASCORBIC ACID. [Concomitant]
     Active Substance: ASCORBIC ACID
  6. ATOVAQUONE. [Concomitant]
     Active Substance: ATOVAQUONE
  7. GABAPENTIN. [Concomitant]
     Active Substance: GABAPENTIN
  8. METFORMIN [Concomitant]
     Active Substance: METFORMIN HYDROCHLORIDE
  9. FERROUS SULFATE. [Concomitant]
     Active Substance: FERROUS SULFATE
  10. MAGNESIUM OXIDE. [Concomitant]
     Active Substance: MAGNESIUM OXIDE
  11. ACETAMINOPHEN. [Concomitant]
     Active Substance: ACETAMINOPHEN
  12. ALBUTEROL. [Concomitant]
     Active Substance: ALBUTEROL
  13. FLUCONAZOLE. [Concomitant]
     Active Substance: FLUCONAZOLE
  14. INSULIN ASPART [Concomitant]
     Active Substance: INSULIN ASPART
  15. OXYBUTYNIN. [Concomitant]
     Active Substance: OXYBUTYNIN CHLORIDE
  16. SENNA [Concomitant]
     Active Substance: SENNA LEAF\SENNOSIDES\SENNOSIDES A AND B
  17. INSULIN GLARGINE [Concomitant]
     Active Substance: INSULIN GLARGINE
  18. PREDNISONE. [Concomitant]
     Active Substance: PREDNISONE
  19. DOCUSATE [Concomitant]
     Active Substance: DOCUSATE
  20. DAPTOMYCIN. [Suspect]
     Active Substance: DAPTOMYCIN
     Indication: INFECTION
     Dosage: 775 MG (6 MG/KG) DAILY IV
     Route: 042
     Dates: start: 20171027, end: 20171118
  21. ASPIRIN. [Concomitant]
     Active Substance: ASPIRIN
  22. CALCIUM + VITAMIN D [Concomitant]
     Active Substance: CALCIUM\VITAMIN D
  23. FOLIC ACID. [Concomitant]
     Active Substance: FOLIC ACID
  24. METHOTREXATE. [Concomitant]
     Active Substance: METHOTREXATE

REACTIONS (3)
  - Myalgia [None]
  - Nephrolithiasis [None]
  - Blood creatine phosphokinase increased [None]

NARRATIVE: CASE EVENT DATE: 20171118
